FAERS Safety Report 25385823 (Version 1)
Quarter: 2025Q2

REPORT INFORMATION
  Report Type: Spontaneous
  Country: PL (occurrence: PL)
  Receive Date: 20250602
  Receipt Date: 20250602
  Transmission Date: 20250717
  Serious: Yes (Other)
  Sender: ELI LILLY AND COMPANY
  Company Number: PL-Merck Healthcare KGaA-2025025916

PATIENT
  Age: 67 Year
  Sex: Female

DRUGS (3)
  1. ERBITUX [Suspect]
     Active Substance: CETUXIMAB
     Indication: Colon cancer metastatic
     Dosage: 500 MG/M2, 2/M
     Route: 042
     Dates: start: 20210107
  2. ERBITUX [Suspect]
     Active Substance: CETUXIMAB
     Dosage: 889.85 MG, 2/M
     Route: 042
     Dates: start: 20220531
  3. FLUOROURACIL\IRINOTECAN\LEUCOVORIN [Concomitant]
     Active Substance: FLUOROURACIL\IRINOTECAN\LEUCOVORIN
     Indication: Colon cancer metastatic
     Route: 042
     Dates: start: 20210107

REACTIONS (3)
  - Arteriosclerosis coronary artery [Unknown]
  - Pulmonary mass [Unknown]
  - Off label use [Unknown]

NARRATIVE: CASE EVENT DATE: 20210107
